FAERS Safety Report 22673346 (Version 5)
Quarter: 2023Q4

REPORT INFORMATION
  Report Type: Report from Study
  Country: CA (occurrence: CA)
  Receive Date: 20230705
  Receipt Date: 20231025
  Transmission Date: 20240110
  Serious: Yes (Hospitalization, Other)
  Sender: FDA-Public Use
  Company Number: CA-002147023-NVSC2023CA150129

PATIENT
  Age: 68 Year
  Sex: Female
  Weight: 74.3 kg

DRUGS (7)
  1. COSENTYX [Suspect]
     Active Substance: SECUKINUMAB
     Indication: Psoriasis
     Dosage: UNK
     Route: 065
  2. ASPIRIN [Concomitant]
     Active Substance: ASPIRIN
     Indication: Product used for unknown indication
     Dosage: 8 MG, BID
     Route: 065
     Dates: start: 20230726
  3. APIXABAN [Concomitant]
     Active Substance: APIXABAN
     Indication: Product used for unknown indication
     Dosage: 5 MG, BID
     Route: 065
     Dates: start: 20230726
  4. DIGOXIN [Concomitant]
     Active Substance: DIGOXIN
     Indication: Product used for unknown indication
     Dosage: 0.125 MG, BID
     Route: 065
     Dates: start: 20230726
  5. METOPROLOL TARTRATE [Concomitant]
     Active Substance: METOPROLOL TARTRATE
     Indication: Product used for unknown indication
     Dosage: 0.25 DOSAGE FORM, BID (50 MG)
     Route: 065
  6. PANTOPRAZOLE MAGNESIUM [Concomitant]
     Active Substance: PANTOPRAZOLE MAGNESIUM
     Indication: Product used for unknown indication
     Dosage: 40 MG, BID
     Route: 065
     Dates: start: 20230726
  7. ROSUVASTATIN [Concomitant]
     Active Substance: ROSUVASTATIN
     Indication: Product used for unknown indication
     Dosage: 40 MG, BID
     Route: 065
     Dates: start: 20230726

REACTIONS (10)
  - Acute myocardial infarction [Recovering/Resolving]
  - Hypotension [Unknown]
  - Atrial fibrillation [Not Recovered/Not Resolved]
  - Hypervolaemia [Recovered/Resolved]
  - Cardiovascular deconditioning [Recovered/Resolved]
  - Angina pectoris [Unknown]
  - Chest discomfort [Recovering/Resolving]
  - Musculoskeletal pain [Unknown]
  - Palpitations [Unknown]
  - Fatigue [Unknown]

NARRATIVE: CASE EVENT DATE: 20230628
